FAERS Safety Report 7643926-8 (Version None)
Quarter: 2011Q3

REPORT INFORMATION
  Report Type: 
  Country: None (occurrence: None)
  Receive Date: 20110729
  Receipt Date: 20110719
  Transmission Date: 20111222
  Serious: Yes (Hospitalization)
  Sender: FDA-Public Use
  Company Number: PL-ABBOTT-11P-129-0840179-00

PATIENT
  Age: 42 Year
  Sex: Female

DRUGS (3)
  1. BISOPROLOL FUMARATE [Suspect]
     Indication: HYPERTENSION
     Dosage: 2.5 MILLIGRAMS DAILY
     Route: 048
  2. HUMIRA [Suspect]
     Indication: ANKYLOSING SPONDYLITIS
     Dates: start: 20101001
  3. DIURETICS [Suspect]
     Indication: OEDEMA PERIPHERAL

REACTIONS (5)
  - FACIAL PARESIS [None]
  - BLOOD PRESSURE DECREASED [None]
  - DEHYDRATION [None]
  - PARESIS [None]
  - CEREBROVASCULAR ACCIDENT [None]
